FAERS Safety Report 8540552-3 (Version None)
Quarter: 2012Q3

REPORT INFORMATION
  Report Type: 
  Country: None (occurrence: None)
  Receive Date: 20120726
  Receipt Date: 20120405
  Transmission Date: 20120928
  Serious: No
  Sender: FDA-Public Use
  Company Number: US-ASTRAZENECA-2011SE46597

PATIENT
  Age: 70 Year
  Sex: Female
  Weight: 61.2 kg

DRUGS (13)
  1. SEROQUEL [Suspect]
     Route: 048
     Dates: start: 19970101, end: 20110730
  2. SEROQUEL [Suspect]
     Route: 048
  3. SEROQUEL [Suspect]
     Indication: SLEEP DISORDER
     Route: 048
  4. PREMARIN [Concomitant]
     Indication: HOT FLUSH
     Dosage: DAILY
  5. GRIAMONE HCTZ [Concomitant]
  6. RESTORIL [Concomitant]
     Indication: SLEEP DISORDER
  7. PRILOSEC [Concomitant]
     Indication: HIATUS HERNIA
     Dosage: DAILY
  8. CLONOPIN [Concomitant]
     Indication: SLEEP DISORDER
  9. SEROQUEL [Suspect]
     Route: 048
  10. FLUID PILL [Concomitant]
     Indication: FLUID RETENTION
     Dosage: DAILY
  11. PREMARIN [Concomitant]
  12. SEROQUEL [Suspect]
     Indication: INSOMNIA
     Route: 048
  13. SEROQUEL [Suspect]
     Route: 048
     Dates: start: 19970101, end: 20110730

REACTIONS (3)
  - INTENTIONAL DRUG MISUSE [None]
  - OFF LABEL USE [None]
  - INSOMNIA [None]
